FAERS Safety Report 7279339-0 (Version None)
Quarter: 2011Q1

REPORT INFORMATION
  Report Type: 
  Country: None (occurrence: None)
  Receive Date: 20110207
  Receipt Date: 20110126
  Transmission Date: 20110831
  Serious: Yes (Death, Hospitalization)
  Sender: FDA-Public Use
  Company Number: US-CELGENEUS-163-21880-11012786

PATIENT
  Age: 70 Year
  Sex: Male

DRUGS (9)
  1. ALBUTEROL [Concomitant]
     Route: 065
  2. AMLODIPINE [Concomitant]
     Route: 065
  3. REVLIMID [Suspect]
     Route: 048
     Dates: start: 20110107, end: 20110111
  4. LOSARTAN POTASSIUM [Concomitant]
     Route: 065
  5. FLUCONAZOLE [Concomitant]
     Route: 065
  6. AVELOX [Concomitant]
     Route: 065
  7. ASPIRIN [Concomitant]
     Route: 065
  8. ACYCLOVIR [Concomitant]
     Route: 065
  9. ZOCOR [Concomitant]
     Route: 065

REACTIONS (2)
  - DEATH [None]
  - PNEUMONIA [None]
